FAERS Safety Report 21608533 (Version 2)
Quarter: 2022Q4

REPORT INFORMATION
  Report Type: Spontaneous
  Country: SI (occurrence: SI)
  Receive Date: 20221117
  Receipt Date: 20221216
  Transmission Date: 20230112
  Serious: Yes (Other)
  Sender: FDA-Public Use
  Company Number: SI-AMGEN-SVNSP2022167708

PATIENT
  Age: 89 Year
  Sex: Female

DRUGS (1)
  1. PROLIA [Suspect]
     Active Substance: DENOSUMAB
     Indication: Osteoporosis
     Dosage: UNK, Q6MO
     Route: 065
     Dates: end: 20211228

REACTIONS (2)
  - Immobile [Unknown]
  - Tooth disorder [Unknown]

NARRATIVE: CASE EVENT DATE: 20220101
